FAERS Safety Report 4410986-7 (Version None)
Quarter: 2004Q3

REPORT INFORMATION
  Report Type: 
  Country: None (occurrence: None)
  Receive Date: 20040729
  Receipt Date: 20040720
  Transmission Date: 20050211
  Serious: Yes (Hospitalization)
  Sender: FDA-Public Use
  Company Number: FR-GLAXOSMITHKLINE-B0339891A

PATIENT
  Age: 32 Year
  Sex: Male

DRUGS (9)
  1. AMOXICILLIN [Suspect]
     Indication: NASOPHARYNGITIS
     Dosage: 3G PER DAY
     Route: 048
     Dates: start: 20040510, end: 20040517
  2. METHOTREXATE [Suspect]
     Indication: BURKITT'S LYMPHOMA
     Dosage: 1500MG SINGLE DOSE
     Route: 030
     Dates: start: 20040510, end: 20040510
  3. OMEPRAZOLE [Suspect]
     Dosage: 20MG PER DAY
     Route: 048
     Dates: start: 20040510
  4. FOLINORAL [Concomitant]
     Route: 065
  5. FRAXODI [Concomitant]
     Route: 058
  6. ARANESP [Concomitant]
     Route: 065
  7. CYCLOPHOSPHAMIDE [Concomitant]
     Dosage: 950MG PER DAY
     Route: 065
     Dates: start: 20040511, end: 20040512
  8. ADRIAMYCIN PFS [Concomitant]
     Dosage: 114MG SINGLE DOSE
     Route: 065
     Dates: start: 20040511, end: 20040511
  9. VINCRISTINE [Concomitant]
     Dosage: 2MG SINGLE DOSE
     Route: 065
     Dates: start: 20040510, end: 20040510

REACTIONS (4)
  - FEBRILE BONE MARROW APLASIA [None]
  - MUCOSAL INFLAMMATION [None]
  - SKIN LESION [None]
  - TOXIC SKIN ERUPTION [None]
